FAERS Safety Report 21628294 (Version 1)
Quarter: 2022Q4

REPORT INFORMATION
  Report Type: Spontaneous
  Country: US (occurrence: US)
  Receive Date: 20221122
  Receipt Date: 20221122
  Transmission Date: 20230113
  Serious: Yes (Other)
  Sender: FDA-Public Use
  Company Number: US-PFIZER INC-PV202200107480

PATIENT
  Age: 66 Year
  Sex: Female

DRUGS (2)
  1. XELJANZ XR [Suspect]
     Active Substance: TOFACITINIB CITRATE
     Dosage: UNK
  2. METAXALONE [Suspect]
     Active Substance: METAXALONE
     Indication: Fibromyalgia
     Dosage: UNK
     Dates: start: 202211

REACTIONS (3)
  - Rheumatoid arthritis [Unknown]
  - Fibromyalgia [Unknown]
  - Dyspepsia [Unknown]

NARRATIVE: CASE EVENT DATE: 20221101
